FAERS Safety Report 4506097-2 (Version None)
Quarter: 2004Q4

REPORT INFORMATION
  Report Type: 
  Country: None (occurrence: None)
  Receive Date: 20041025
  Receipt Date: 20040503
  Transmission Date: 20050328
  Serious: Yes (Other)
  Sender: FDA-Public Use
  Company Number: US-JNJFOC-20040500438

PATIENT
  Age: 49 Year
  Sex: Female
  Weight: 70.5 kg

DRUGS (5)
  1. INFLIXIMAB (INFLIXIMAB, RECOMBINANT) LYOPHILIZED POWDER [Suspect]
     Dosage: INTRAVENOUS
     Route: 042
  2. LEFLUNOMIDE [Suspect]
     Indication: RHEUMATOID ARTHRITIS
     Dosage: 20 MG, 1 IN 1 DAY
     Dates: start: 20010401, end: 20040201
  3. IBUPROFEN [Concomitant]
  4. PREDNISONE [Concomitant]
  5. ALENDRONATE SODIUM [Concomitant]

REACTIONS (2)
  - RASH [None]
  - VASCULITIS [None]
